FAERS Safety Report 9459093 (Version 2)
Quarter: 2013Q3

REPORT INFORMATION
  Report Type: Spontaneous
  Country: US (occurrence: US)
  Receive Date: 20130814
  Receipt Date: 20130823
  Transmission Date: 20140515
  Serious: Yes (Life-Threatening, Disabling)
  Sender: FDA-Public Use
  Company Number: US-009507513-1308USA005215

PATIENT
  Age: 67 Year
  Sex: Male

DRUGS (1)
  1. TICE BCG LIVE [Suspect]
     Indication: BLADDER CANCER
     Dosage: UNK
     Route: 043
     Dates: start: 20060915, end: 20130304

REACTIONS (2)
  - Treatment failure [Unknown]
  - Drug ineffective [Unknown]
